FAERS Safety Report 14909186 (Version 2)
Quarter: 2018Q2

REPORT INFORMATION
  Report Type: Spontaneous
  Country: US (occurrence: US)
  Receive Date: 20180517
  Receipt Date: 20180521
  Transmission Date: 20180711
  Serious: No
  Sender: FDA-Public Use
  Company Number: US-PFIZER INC-2018198483

PATIENT
  Sex: Male
  Weight: 79 kg

DRUGS (2)
  1. SUTENT [Suspect]
     Active Substance: SUNITINIB MALATE
     Indication: ENDOCRINE NEOPLASM
  2. SUTENT [Suspect]
     Active Substance: SUNITINIB MALATE
     Indication: PANCREATIC NEOPLASM
     Dosage: 37.5 MG, DAILY (ONE CAPSULE BY MOUTH DAILY)
     Route: 048
     Dates: start: 201509, end: 20180514

REACTIONS (9)
  - Dizziness [Unknown]
  - Headache [Not Recovered/Not Resolved]
  - Nausea [Unknown]
  - Blood pressure increased [Unknown]
  - Oropharyngeal pain [Unknown]
  - Abdominal pain [Unknown]
  - Vision blurred [Unknown]
  - Diarrhoea [Unknown]
  - Gastrointestinal pain [Unknown]
